FAERS Safety Report 8539207-0 (Version None)
Quarter: 2012Q3

REPORT INFORMATION
  Report Type: 
  Country: None (occurrence: None)
  Receive Date: 20120716
  Receipt Date: 20120709
  Transmission Date: 20120928
  Serious: Yes (Congenital Anomaly, Other)
  Sender: FDA-Public Use
  Company Number: GER/GER/12/0024970

PATIENT
  Sex: Female

DRUGS (5)
  1. FOLIO FORTE (FOLIO) [Concomitant]
  2. FLUOXETINE [Suspect]
     Indication: PRODUCT USED FOR UNKNOWN INDICATION
     Dosage: 40 MG, 1 D, TRANSPLACENTAL
     Route: 064
     Dates: start: 20100523
  3. CIPROFLOXACIN [Concomitant]
  4. AMOXICILLIN [Concomitant]
  5. ACETAMINOPHEN [Concomitant]

REACTIONS (6)
  - HYDROCEPHALUS [None]
  - CONGENITAL ANOMALY [None]
  - SPINA BIFIDA [None]
  - MATERNAL DRUGS AFFECTING FOETUS [None]
  - CEREBELLAR HYPOPLASIA [None]
  - ARNOLD-CHIARI MALFORMATION [None]
